FAERS Safety Report 4393776-3 (Version None)
Quarter: 2004Q3

REPORT INFORMATION
  Report Type: 
  Country: None (occurrence: None)
  Receive Date: 20040706
  Receipt Date: 20040628
  Transmission Date: 20050211
  Serious: Yes (Hospitalization)
  Sender: FDA-Public Use
  Company Number: TPG2004A00128

PATIENT
  Sex: Female

DRUGS (6)
  1. ACTOS [Suspect]
     Indication: DIABETES MELLITUS
     Dosage: 30 MG (30 MG, 1 IN 1 D) ORAL
     Route: 048
     Dates: end: 20040501
  2. CAPTOBETA (CAPTOPRIL) [Concomitant]
  3. NIFEDIPINE [Concomitant]
  4. HYDROCHLOROTHIAZIDE [Concomitant]
  5. METFORMIN HCL [Concomitant]
  6. EUGLUCON N (GLIBENCLAMIDE) [Concomitant]

REACTIONS (14)
  - ATRIOVENTRICULAR BLOCK COMPLETE [None]
  - CONDITION AGGRAVATED [None]
  - DIABETES MELLITUS [None]
  - GENERALISED OEDEMA [None]
  - HEADACHE [None]
  - HEPATITIS TOXIC [None]
  - HYPERKALAEMIA [None]
  - HYPERTENSION [None]
  - NAUSEA [None]
  - PARAESTHESIA [None]
  - RENAL FAILURE [None]
  - RETCHING [None]
  - SYNCOPE [None]
  - TREATMENT NONCOMPLIANCE [None]
